FAERS Safety Report 12976357 (Version 1)
Quarter: 2016Q4

REPORT INFORMATION
  Report Type: Spontaneous
  Country: US (occurrence: US)
  Receive Date: 20161126
  Receipt Date: 20161126
  Transmission Date: 20170207
  Serious: No
  Sender: FDA-Public Use
  Company Number: US-CELGENEUS-USA-2016112084

PATIENT
  Age: 64 Year
  Sex: Female
  Weight: 63.56 kg

DRUGS (3)
  1. OTEZLA [Suspect]
     Active Substance: APREMILAST
     Dosage: 60 MG
     Route: 048
     Dates: start: 2016
  2. OTEZLA [Suspect]
     Active Substance: APREMILAST
     Dosage: 30 MG
     Route: 048
     Dates: start: 201610
  3. OTEZLA [Suspect]
     Active Substance: APREMILAST
     Indication: PSORIASIS
     Dosage: 60 MG
     Route: 048
     Dates: start: 201606

REACTIONS (2)
  - Upper respiratory tract infection [Not Recovered/Not Resolved]
  - Headache [Not Recovered/Not Resolved]

NARRATIVE: CASE EVENT DATE: 201606
